FAERS Safety Report 13533661 (Version 1)
Quarter: 2017Q2

REPORT INFORMATION
  Report Type: Spontaneous
  Country: US (occurrence: US)
  Receive Date: 20170510
  Receipt Date: 20170510
  Transmission Date: 20170830
  Serious: Yes (Other)
  Sender: FDA-Public Use
  Company Number: US-IMPAX LABORATORIES, INC-2017-IPXL-01267

PATIENT
  Age: 57 Year
  Sex: Female

DRUGS (3)
  1. MORPHINE SULFATE EXTENDED-RELEASE [Suspect]
     Active Substance: MORPHINE SULFATE
     Indication: PRODUCT USED FOR UNKNOWN INDICATION
     Dosage: UNK
     Route: 065
  2. CEFOXITIN [Suspect]
     Active Substance: CEFOXITIN SODIUM
     Indication: COLITIS
     Dosage: UNK
     Route: 065
  3. METRONIDAZOLE. [Suspect]
     Active Substance: METRONIDAZOLE
     Indication: COLITIS
     Dosage: UNK
     Route: 065

REACTIONS (7)
  - Pallor [Unknown]
  - Systemic mastocytosis [Unknown]
  - Pulseless electrical activity [Unknown]
  - Unresponsive to stimuli [Unknown]
  - Nausea [Unknown]
  - Chest pain [Unknown]
  - Dyspnoea [Unknown]
